FAERS Safety Report 20684875 (Version 1)
Quarter: 2022Q2

REPORT INFORMATION
  Report Type: Spontaneous
  Country: HR (occurrence: HR)
  Receive Date: 20220407
  Receipt Date: 20220407
  Transmission Date: 20220721
  Serious: Yes (Other)
  Sender: FDA-Public Use
  Company Number: HR-002147023-NVSC2022HR071448

PATIENT
  Sex: Male

DRUGS (1)
  1. LUCENTIS [Suspect]
     Active Substance: RANIBIZUMAB
     Indication: Polypoidal choroidal vasculopathy
     Dosage: LEFT EYE INITIATION OF ANTI-VEGF (LUCENTIS) LOADING DOSE 3X IN A ROW IN 4-WEEK INTERVALS,RESULTS WIT
     Route: 065

REACTIONS (9)
  - Neovascular age-related macular degeneration [Unknown]
  - Retinal oedema [Unknown]
  - Retinal deposits [Unknown]
  - Foveal reflex abnormal [Unknown]
  - Retinal scar [Unknown]
  - Detachment of retinal pigment epithelium [Unknown]
  - Subretinal fluid [Unknown]
  - Visual acuity reduced [Unknown]
  - Product use in unapproved indication [Unknown]
